FAERS Safety Report 15362093 (Version 1)
Quarter: 2018Q3

REPORT INFORMATION
  Report Type: Spontaneous
  Country: NL (occurrence: NL)
  Receive Date: 20180907
  Receipt Date: 20180907
  Transmission Date: 20181010
  Serious: Yes (Death, Hospitalization)
  Sender: FDA-Public Use
  Company Number: NL-BAUSCH-BL-2018-024068

PATIENT
  Age: 39 Year
  Sex: Female

DRUGS (2)
  1. METFORMIN [Suspect]
     Active Substance: METFORMIN HYDROCHLORIDE
     Indication: SUICIDE ATTEMPT
     Route: 065
  2. INSULIN [Suspect]
     Active Substance: INSULIN NOS
     Indication: SUICIDE ATTEMPT
     Dosage: TAKEN IN COMBINATION WITH METFORMIN SUBCUTANEOUSLY ADMINISTERED, LONG?ACTING INSULIN
     Route: 058

REACTIONS (6)
  - Lactic acidosis [Unknown]
  - Suicide attempt [Unknown]
  - Cardiac arrest [Unknown]
  - Intentional overdose [Unknown]
  - Toxicity to various agents [Unknown]
  - Multiple organ dysfunction syndrome [Fatal]
